FAERS Safety Report 21706038 (Version 2)
Quarter: 2023Q1

REPORT INFORMATION
  Report Type: Spontaneous
  Country: US (occurrence: US)
  Receive Date: 20221209
  Receipt Date: 20230201
  Transmission Date: 20230417
  Serious: Yes (Other)
  Sender: FDA-Public Use
  Company Number: US-GLENMARK PHARMACEUTICALS-2022GMK076965

PATIENT
  Age: 94 Year
  Sex: Male

DRUGS (1)
  1. SULFAMETHOXAZOLE\TRIMETHOPRIM [Suspect]
     Active Substance: SULFAMETHOXAZOLE\TRIMETHOPRIM
     Indication: Escherichia bacteraemia
     Dosage: UNK, TWO DOUBLE STRENGTH Q12H FOR A TOTAL OF 9 DAYS
     Route: 065

REACTIONS (4)
  - Hydronephrosis [Recovered/Resolved]
  - Nephrolithiasis [Recovered/Resolved]
  - Acute kidney injury [Recovered/Resolved]
  - Hyperkalaemia [Unknown]
